FAERS Safety Report 6648237-5 (Version None)
Quarter: 2010Q1

REPORT INFORMATION
  Report Type: 
  Country: None (occurrence: None)
  Receive Date: 20100324
  Receipt Date: 20100315
  Transmission Date: 20100710
  Serious: Yes (Other)
  Sender: FDA-Public Use
  Company Number: US-JNJFOC-20100304772

PATIENT
  Sex: Female

DRUGS (2)
  1. REMICADE [Suspect]
     Indication: ANKYLOSING SPONDYLITIS
     Dosage: STOPPED IN 2005 OR 2006
     Route: 042
  2. HUMIRA [Suspect]
     Indication: ANKYLOSING SPONDYLITIS

REACTIONS (4)
  - DRUG SPECIFIC ANTIBODY PRESENT [None]
  - DYSPNOEA [None]
  - IMPAIRED WORK ABILITY [None]
  - VISION BLURRED [None]
